FAERS Safety Report 5193759-X (Version None)
Quarter: 2006Q4

REPORT INFORMATION
  Report Type: 
  Country: None (occurrence: None)
  Receive Date: 20061228
  Receipt Date: 20061220
  Transmission Date: 20070319
  Serious: Yes (Life-Threatening)
  Sender: FDA-Public Use
  Company Number: FR-GLAXOSMITHKLINE-B0451271A

PATIENT
  Age: 50 Year
  Sex: Male
  Weight: 87 kg

DRUGS (3)
  1. COMBIVIR [Suspect]
     Indication: HIV INFECTION
     Dosage: 2UNIT PER DAY
     Route: 048
     Dates: start: 20000831, end: 20061113
  2. PYRIMETHAMINE TAB [Suspect]
     Dosage: 1UNIT PER DAY
     Route: 048
     Dates: start: 20060915, end: 20061020
  3. DAPSONE [Suspect]
     Dosage: 1UNIT PER DAY
     Route: 048
     Dates: start: 20060915, end: 20061020

REACTIONS (6)
  - ANAEMIA MACROCYTIC [None]
  - APLASTIC ANAEMIA [None]
  - CHEST PAIN [None]
  - DYSPNOEA EXERTIONAL [None]
  - PALPITATIONS [None]
  - TREATMENT NONCOMPLIANCE [None]
